FAERS Safety Report 6728732-0 (Version None)
Quarter: 2010Q2

REPORT INFORMATION
  Report Type: 
  Country: None (occurrence: None)
  Receive Date: 20100517
  Receipt Date: 20100510
  Transmission Date: 20101027
  Serious: Yes (Hospitalization, Disabling)
  Sender: FDA-Public Use
  Company Number: DE-MERCK-1005DEU00028

PATIENT
  Age: 52 Year
  Sex: Male
  Weight: 95 kg

DRUGS (7)
  1. JANUVIA [Suspect]
     Route: 048
     Dates: start: 20100416, end: 20100401
  2. JANUVIA [Suspect]
     Route: 048
     Dates: start: 20100101
  3. CARVEDILOL [Concomitant]
     Route: 048
  4. INDAPAMIDE AND PERINDOPRIL ARGININE [Concomitant]
     Route: 048
  5. TORSEMIDE [Concomitant]
     Route: 048
  6. LERCANIDIPINE HYDROCHLORIDE [Concomitant]
     Route: 048
  7. PANTOPRAZOLE SODIUM [Concomitant]
     Route: 048

REACTIONS (1)
  - THALAMIC INFARCTION [None]
